FAERS Safety Report 18644076 (Version 1)
Quarter: 2020Q4

REPORT INFORMATION
  Report Type: Spontaneous
  Country: IT (occurrence: IT)
  Receive Date: 20201221
  Receipt Date: 20201221
  Transmission Date: 20210114
  Serious: Yes (Other)
  Sender: FDA-Public Use
  Company Number: IT-ASTRAZENECA-2017SE64273

PATIENT

DRUGS (6)
  1. DILATREND [Concomitant]
     Active Substance: CARVEDILOL
  2. TORVAST [Concomitant]
     Active Substance: ATORVASTATIN
     Dosage: IN THE EVENING20.0MG ONCE/SINGLE ADMINISTRATION
  3. TRIATEC [RAMIPRIL] [Concomitant]
     Active Substance: RAMIPRIL
  4. CARDIOASPIRIN [Concomitant]
     Active Substance: ASPIRIN
  5. BRILIQUE [Suspect]
     Active Substance: TICAGRELOR
     Dosage: IN THE MORNING AND EVENING
     Route: 048
  6. PANTORC [Concomitant]
     Active Substance: PANTOPRAZOLE SODIUM

REACTIONS (6)
  - Ventricular hypokinesia [Unknown]
  - Asthenia [Unknown]
  - Fatigue [Unknown]
  - Ejection fraction decreased [Recovered/Resolved]
  - Blood pressure decreased [Unknown]
  - Mitral valve incompetence [Recovered/Resolved]
